FAERS Safety Report 19495435 (Version 1)
Quarter: 2021Q3

REPORT INFORMATION
  Report Type: Spontaneous
  Country: GB (occurrence: GB)
  Receive Date: 20210706
  Receipt Date: 20210706
  Transmission Date: 20211014
  Serious: Yes (Other)
  Sender: FDA-Public Use
  Company Number: GB-CURIUM-200800207

PATIENT
  Age: 65 Year
  Sex: Male

DRUGS (1)
  1. SODIUM IODIDE I 131 [Suspect]
     Active Substance: SODIUM IODIDE I-131

REACTIONS (2)
  - Basedow^s disease [Recovered/Resolved]
  - Endocrine ophthalmopathy [Recovered/Resolved]
